FAERS Safety Report 4847119-9 (Version None)
Quarter: 2005Q4

REPORT INFORMATION
  Report Type: 
  Country: None (occurrence: None)
  Receive Date: 20051205
  Receipt Date: 20051205
  Transmission Date: 20060501
  Serious: Yes (Death)
  Sender: FDA-Public Use
  Company Number: None

PATIENT
  Age: 38 Year
  Sex: Male
  Weight: 92.9874 kg

DRUGS (4)
  1. AVASTIN [Suspect]
     Indication: ANGIOSARCOMA
     Dosage: 932 MG Q 21 DAYS
     Dates: start: 20051104
  2. AVASTIN [Suspect]
     Indication: METASTASES TO CENTRAL NERVOUS SYSTEM
     Dosage: 932 MG Q 21 DAYS
     Dates: start: 20051104
  3. AVASTIN [Suspect]
     Indication: METASTASES TO LUNG
     Dosage: 932 MG Q 21 DAYS
     Dates: start: 20051104
  4. AVASTIN [Suspect]

REACTIONS (7)
  - BRAIN DEATH [None]
  - COMPUTERISED TOMOGRAM ABNORMAL [None]
  - HAEMORRHAGE [None]
  - HEADACHE [None]
  - MENTAL STATUS CHANGES [None]
  - NERVOUS SYSTEM DISORDER [None]
  - RESPIRATORY FAILURE [None]
